FAERS Safety Report 9517529 (Version 2)
Quarter: 2013Q4

REPORT INFORMATION
  Report Type: Report from Study
  Country: US (occurrence: US)
  Receive Date: 20130911
  Receipt Date: 20131002
  Transmission Date: 20140711
  Serious: Yes (Hospitalization)
  Sender: FDA-Public Use
  Company Number: US-MILLENNIUM PHARMACEUTICALS, INC.-2013MPI000260

PATIENT
  Age: 48 Year
  Sex: Female
  Weight: 89.36 kg

DRUGS (10)
  1. VELCADE [Suspect]
     Indication: PLASMA CELL MYELOMA
     Dosage: 1.3 MG/M2, 2/WEEK
     Route: 042
     Dates: start: 20130819, end: 20130829
  2. DEXAMETHASONE [Suspect]
     Indication: PLASMA CELL MYELOMA
     Dosage: 20 MG, 4/WEEK
     Route: 048
     Dates: start: 20130819
  3. LENALIDOMIDE [Suspect]
     Indication: PLASMA CELL MYELOMA
     Dosage: 25 MG, X 14 DAYS
     Route: 048
     Dates: start: 20130819, end: 20130829
  4. ZOVIRAX                            /00587301/ [Concomitant]
     Dosage: UNK
     Dates: start: 20130819
  5. ASPIRIN [Concomitant]
     Dosage: UNK
     Dates: start: 20130819
  6. CYANOCOBALAMIN [Concomitant]
     Dosage: UNK
     Dates: start: 20130625
  7. HYDRODIURIL [Concomitant]
     Dosage: UNK
  8. PRILOSEC                           /00661201/ [Concomitant]
     Dosage: UNK
  9. PHENERGAN                          /00033001/ [Concomitant]
     Dosage: UNK
     Dates: start: 20130820
  10. STOMATITIS MEDICATION [Concomitant]
     Indication: STOMATITIS

REACTIONS (3)
  - Colitis [Recovered/Resolved]
  - Haematochezia [Recovered/Resolved]
  - Thrombocytopenia [Recovered/Resolved]
